FAERS Safety Report 7711132-4 (Version None)
Quarter: 2011Q3

REPORT INFORMATION
  Report Type: 
  Country: None (occurrence: None)
  Receive Date: 20110826
  Receipt Date: 20110818
  Transmission Date: 20111222
  Serious: No
  Sender: FDA-Public Use
  Company Number: US-BIOGENIDEC-2011BI023557

PATIENT
  Sex: Female

DRUGS (3)
  1. TYSABRI [Suspect]
     Indication: MULTIPLE SCLEROSIS
     Route: 042
     Dates: start: 20110527
  2. AVONEX [Concomitant]
     Indication: MULTIPLE SCLEROSIS
     Route: 030
     Dates: start: 20021111
  3. AVONEX [Concomitant]
     Route: 030

REACTIONS (5)
  - HYPOAESTHESIA [None]
  - ABDOMINAL PAIN UPPER [None]
  - FALL [None]
  - CONTUSION [None]
  - CENTRAL NERVOUS SYSTEM LESION [None]
